FAERS Safety Report 24661386 (Version 1)
Quarter: 2024Q4

REPORT INFORMATION
  Report Type: Spontaneous
  Country: US (occurrence: None)
  Receive Date: 20241125
  Receipt Date: 20241125
  Transmission Date: 20250115
  Serious: Yes (Other)
  Sender: Public
  Company Number: None

PATIENT
  Age: 69 Year
  Sex: Female
  Weight: 69.75 kg

DRUGS (1)
  1. SINGULAIR [Suspect]
     Active Substance: MONTELUKAST SODIUM
     Indication: Asthma
     Dosage: FREQUENCY : AT BEDTIME;?
     Route: 048

REACTIONS (1)
  - Suicidal ideation [None]

NARRATIVE: CASE EVENT DATE: 20230615
